FAERS Safety Report 13933040 (Version 2)
Quarter: 2017Q4

REPORT INFORMATION
  Report Type: Spontaneous
  Country: US (occurrence: US)
  Receive Date: 20170904
  Receipt Date: 20171101
  Transmission Date: 20180320
  Serious: No
  Sender: FDA-Public Use
  Company Number: US-ASTRAZENECA-2017SE87817

PATIENT
  Sex: Male

DRUGS (1)
  1. SYMBICORT [Suspect]
     Active Substance: BUDESONIDE\FORMOTEROL FUMARATE DIHYDRATE
     Dosage: 160/4.5 MCG, TWO INHALATIONS TWICE DAILY
     Route: 055

REACTIONS (4)
  - Device malfunction [Unknown]
  - Packaging design issue [Unknown]
  - Overdose [Unknown]
  - Palpitations [Unknown]
